FAERS Safety Report 6020932-0 (Version None)
Quarter: 2008Q4

REPORT INFORMATION
  Report Type: 
  Country: None (occurrence: None)
  Receive Date: 20081229
  Receipt Date: 20081218
  Transmission Date: 20090506
  Serious: Yes (Other)
  Sender: FDA-Public Use
  Company Number: FR-JNJFOC-20081205708

PATIENT
  Age: 56 Year
  Sex: Female

DRUGS (3)
  1. REMICADE [Suspect]
     Dosage: TOTAL OF 55 INFUSIONS
     Route: 042
  2. REMICADE [Suspect]
     Indication: RHEUMATOID ARTHRITIS
     Route: 042
  3. METHOTREXATE [Concomitant]
     Indication: RHEUMATOID ARTHRITIS

REACTIONS (1)
  - SYSTEMIC LUPUS ERYTHEMATOSUS [None]
